FAERS Safety Report 8191829-5 (Version None)
Quarter: 2012Q1

REPORT INFORMATION
  Report Type: 
  Country: None (occurrence: None)
  Receive Date: 20120307
  Receipt Date: 20120227
  Transmission Date: 20120608
  Serious: Yes (Hospitalization)
  Sender: FDA-Public Use
  Company Number: ES-PFIZER INC-2012058388

PATIENT
  Age: 84 Year
  Sex: Female

DRUGS (4)
  1. ACOVIL [Concomitant]
     Indication: HYPERTENSION
     Dosage: 2.5 MG, UNK
     Route: 048
     Dates: start: 20070101
  2. SINTROM [Concomitant]
     Indication: ATRIAL FIBRILLATION
     Dosage: 4 MG, UNK
     Route: 048
     Dates: start: 20080101
  3. PANTOPRAZOLE [Suspect]
     Indication: HIATUS HERNIA
     Dosage: 20 MG, UNK
     Route: 048
     Dates: start: 19900101
  4. ATROVENT [Concomitant]
     Indication: BRONCHIECTASIS
     Dosage: 250 UG, UNK
     Dates: start: 20070101

REACTIONS (1)
  - SPINAL FRACTURE [None]
